FAERS Safety Report 16859917 (Version 1)
Quarter: 2019Q4

REPORT INFORMATION
  Report Type: Spontaneous
  Country: US (occurrence: US)
  Receive Date: 20190927
  Receipt Date: 20190927
  Transmission Date: 20200122
  Serious: Yes (Other)
  Sender: FDA-Public Use
  Company Number: None

PATIENT
  Age: 66 Year
  Sex: Female
  Weight: 47.7 kg

DRUGS (10)
  1. LEVOTHYROXINE. [Suspect]
     Active Substance: LEVOTHYROXINE
     Indication: AUTOIMMUNE THYROIDITIS
     Dosage: ?          QUANTITY:30 TABLET(S);?
     Route: 048
  2. LIBRAX [Concomitant]
     Active Substance: CHLORDIAZEPOXIDE HYDROCHLORIDE\CLIDINIUM BROMIDE
  3. BACLOFEN. [Concomitant]
     Active Substance: BACLOFEN
  4. BENTYL [Concomitant]
     Active Substance: DICYCLOMINE HYDROCHLORIDE
  5. LOVAZA [Concomitant]
     Active Substance: OMEGA-3-ACID ETHYL ESTERS
  6. COQ10 [Concomitant]
     Active Substance: UBIDECARENONE
  7. VITAMIN D [Concomitant]
     Active Substance: VITAMIN D NOS
  8. TOPAMAX [Concomitant]
     Active Substance: TOPIRAMATE
  9. SYNTHROID [Concomitant]
     Active Substance: LEVOTHYROXINE SODIUM
  10. ATIVAN [Concomitant]
     Active Substance: LORAZEPAM

REACTIONS (9)
  - Product substitution issue [None]
  - Headache [None]
  - Anxiety [None]
  - Palpitations [None]
  - Head discomfort [None]
  - Product solubility abnormal [None]
  - Chest pain [None]
  - Blood pressure increased [None]
  - Body temperature fluctuation [None]

NARRATIVE: CASE EVENT DATE: 20190920
